FAERS Safety Report 8275410-5 (Version None)
Quarter: 2012Q2

REPORT INFORMATION
  Report Type: 
  Country: None (occurrence: None)
  Receive Date: 20120411
  Receipt Date: 20120402
  Transmission Date: 20120825
  Serious: Yes (Life-Threatening, Hospitalization, Other)
  Sender: FDA-Public Use
  Company Number: US-RB-038904-12

PATIENT
  Age: 56 Year
  Sex: Male

DRUGS (6)
  1. NICOTINE [Concomitant]
     Indication: NICOTINE DEPENDENCE
     Dosage: UNKNOWN DOSAGE- DAILY
     Route: 065
  2. BUPRENORPHINE [Suspect]
     Indication: DRUG DEPENDENCE
     Route: 060
     Dates: start: 20110201, end: 20120126
  3. ASPIRIN [Concomitant]
     Indication: CARDIOVASCULAR DISORDER
     Dosage: BABY ASPIRIN DAILY
     Route: 065
  4. SUBOXONE [Suspect]
     Indication: DRUG DEPENDENCE
     Route: 060
     Dates: start: 20120127
  5. NITROGLYCERIN [Concomitant]
     Indication: CHEST PAIN
     Dosage: AS NEEDED
     Route: 065
     Dates: start: 20080101
  6. BETA BLOCKERS [Concomitant]
     Indication: CARDIOVASCULAR DISORDER
     Dosage: DAILY USE - UNKNOWN DOSAGE
     Route: 065
     Dates: start: 20080101

REACTIONS (3)
  - CARDIAC ARREST [None]
  - WRONG TECHNIQUE IN DRUG USAGE PROCESS [None]
  - ANOXIA [None]
